FAERS Safety Report 8908129 (Version 1)
Quarter: 2012Q4

REPORT INFORMATION
  Report Type: 
  Country: BE (occurrence: BE)
  Receive Date: 20121114
  Receipt Date: 20121114
  Transmission Date: 20130627
  Serious: Yes (Hospitalization)
  Sender: FDA-Public Use
  Company Number: BE-BAXTER-2012BAX022165

PATIENT
  Age: 39 Year
  Sex: Female

DRUGS (3)
  1. PHYSIONEAL 35 GLUCOSE 1,36% P/V/ 13,6 MG/ML [Suspect]
     Indication: END STAGE RENAL DISEASE (ESRD)
     Route: 033
     Dates: end: 20121105
  2. EXTRANEAL PD SOLUTION [Suspect]
     Indication: END STAGE RENAL DISEASE (ESRD)
     Route: 033
     Dates: end: 20121105
  3. PHYSIONEAL 35 GLUCOSE 2,27% P/V/ 2,27 MG/ML [Suspect]
     Indication: END STAGE RENAL DISEASE (ESRD)
     Route: 033
     Dates: end: 20121105

REACTIONS (5)
  - Pancreatitis [Unknown]
  - Procedural pain [Not Recovered/Not Resolved]
  - Hyponatraemia [Unknown]
  - Nausea [Unknown]
  - General physical health deterioration [Unknown]
